FAERS Safety Report 7545695-9 (Version None)
Quarter: 2011Q2

REPORT INFORMATION
  Report Type: 
  Country: None (occurrence: None)
  Receive Date: 20110613
  Receipt Date: 20110613
  Transmission Date: 20111010
  Serious: Yes (Other)
  Sender: FDA-Public Use
  Company Number: None

PATIENT
  Sex: Male
  Weight: 86.1834 kg

DRUGS (1)
  1. CARBIDOPA + LEVODOPA [Suspect]
     Indication: PARKINSON'S DISEASE
     Dosage: 1 TABLET 3 TIMES DAILY PO
     Route: 048
     Dates: start: 20110316, end: 20110609

REACTIONS (2)
  - SEXUALLY INAPPROPRIATE BEHAVIOUR [None]
  - COGNITIVE DISORDER [None]
